FAERS Safety Report 6517883-1 (Version None)
Quarter: 2009Q4

REPORT INFORMATION
  Report Type: 
  Country: None (occurrence: None)
  Receive Date: 20091223
  Receipt Date: 20091223
  Transmission Date: 20100525
  Serious: Yes (Other)
  Sender: FDA-Public Use
  Company Number: None

PATIENT
  Age: 65 Year
  Sex: Female

DRUGS (1)
  1. ANCEF [Suspect]
     Indication: CELLULITIS
     Dosage: 1 GRAM EVERY 6 HOURS IV
     Route: 042
     Dates: start: 20090718, end: 20090719

REACTIONS (1)
  - WHITE BLOOD CELL COUNT DECREASED [None]
